FAERS Safety Report 9239625 (Version 1)
Quarter: 2013Q2

REPORT INFORMATION
  Report Type: Spontaneous
  Country: US (occurrence: US)
  Receive Date: 20130418
  Receipt Date: 20130418
  Transmission Date: 20140414
  Serious: Yes (Other)
  Sender: FDA-Public Use
  Company Number: US-PFIZER INC-2013116436

PATIENT
  Sex: Female

DRUGS (2)
  1. GEODON [Suspect]
     Indication: HALLUCINATION, AUDITORY
     Dosage: UNK
     Dates: start: 2007
  2. ABILIFY [Suspect]
     Dosage: UNK

REACTIONS (15)
  - Hallucination, auditory [Unknown]
  - Hyperthyroidism [Unknown]
  - Coeliac disease [Unknown]
  - Hepatic enzyme abnormal [Unknown]
  - Gastrointestinal disorder [Unknown]
  - Hypertension [Unknown]
  - Eye movement disorder [Unknown]
  - Incorrect route of drug administration [Unknown]
  - Paraesthesia [Unknown]
  - Food allergy [Unknown]
  - Weight decreased [Unknown]
  - Hypothyroidism [Unknown]
  - Insomnia [Unknown]
  - Anger [Unknown]
  - Thyroid function test abnormal [Unknown]
